FAERS Safety Report 7601789-0 (Version None)
Quarter: 2011Q3

REPORT INFORMATION
  Report Type: 
  Country: None (occurrence: None)
  Receive Date: 20110711
  Receipt Date: 20110707
  Transmission Date: 20111222
  Serious: No
  Sender: FDA-Public Use
  Company Number: US-TEVA-289555USA

PATIENT

DRUGS (2)
  1. AZILECT [Suspect]
     Route: 048
  2. SINEMET [Suspect]

REACTIONS (1)
  - SEXUAL DYSFUNCTION [None]
